FAERS Safety Report 8788659 (Version 1)
Quarter: 2012Q4

REPORT INFORMATION
  Report Type: 
  Country: BR (occurrence: BR)
  Receive Date: 20120915
  Receipt Date: 20120915
  Transmission Date: 20130627
  Serious: Yes (Hospitalization)
  Sender: FDA-Public Use
  Company Number: BR-ABBOTT-12P-020-0977042-00

PATIENT
  Age: 33 Year
  Sex: Female

DRUGS (2)
  1. DEPAKOTE [Suspect]
     Indication: PRODUCT USED FOR UNKNOWN INDICATION
     Dates: end: 20120806
  2. NIMESULIDE [Concomitant]
     Indication: PRODUCT USED FOR UNKNOWN INDICATION
     Dates: end: 20120805

REACTIONS (4)
  - Trigeminal neuralgia [Unknown]
  - Demyelination [Unknown]
  - Hypersensitivity [Recovering/Resolving]
  - Expired drug administered [Unknown]
